FAERS Safety Report 13276967 (Version 1)
Quarter: 2017Q1

REPORT INFORMATION
  Report Type: Spontaneous
  Country: DE (occurrence: DE)
  Receive Date: 20170228
  Receipt Date: 20170228
  Transmission Date: 20170428
  Serious: Yes (Hospitalization, Other)
  Sender: FDA-Public Use
  Company Number: DE-009507513-1702DEU010565

PATIENT
  Sex: Male
  Weight: 74 kg

DRUGS (9)
  1. NOVALGIN (ACETAMINOPHEN (+) CAFFEINE (+) PROPYPHENAZONE) [Suspect]
     Active Substance: ACETAMINOPHEN\CAFFEINE\PROPYPHENAZONE
     Indication: PAIN
     Dosage: 750 MG, 4 TIMES DAILY
     Dates: start: 20170207, end: 20170217
  2. EZETROL 10 MG TABLETTEN [Suspect]
     Active Substance: EZETIMIBE
     Indication: HYPERTRIGLYCERIDAEMIA
     Dosage: 10 MG, UNK
     Route: 048
     Dates: start: 20170210, end: 20170217
  3. PREDNISOLON [Concomitant]
     Active Substance: PREDNISOLONE
     Dosage: 100 MG, UNK
  4. PROCORALAN [Concomitant]
     Active Substance: IVABRADINE
     Dosage: 5 MG, UNK
  5. RAMIPRIL. [Concomitant]
     Active Substance: RAMIPRIL
     Dosage: 2.5 MG, BID
  6. ASS 100 [Concomitant]
     Active Substance: ASPIRIN
     Dosage: 100 MG, UNK
  7. PANTOZOL [Concomitant]
     Active Substance: PANTOPRAZOLE SODIUM
     Dosage: 40 MG, UNK
  8. METOPROLOL. [Concomitant]
     Active Substance: METOPROLOL
     Dosage: 25 MG, BID
  9. ATORVASTATIN [Concomitant]
     Active Substance: ATORVASTATIN
     Dosage: UNK
     Dates: end: 20170210

REACTIONS (4)
  - Aspartate aminotransferase increased [Unknown]
  - Dermatitis bullous [Unknown]
  - Gamma-glutamyltransferase increased [Unknown]
  - Alanine aminotransferase increased [Unknown]

NARRATIVE: CASE EVENT DATE: 20170215
